FAERS Safety Report 10102337 (Version 1)
Quarter: 2014Q2

REPORT INFORMATION
  Report Type: Spontaneous
  Country: IT (occurrence: IT)
  Receive Date: 20140424
  Receipt Date: 20140424
  Transmission Date: 20141212
  Serious: Yes (Other)
  Sender: FDA-Public Use
  Company Number: IT-PFIZER INC-2014113361

PATIENT
  Age: 79 Year
  Sex: Male

DRUGS (1)
  1. ALPRAZOLAM [Suspect]
     Indication: GENERALISED ANXIETY DISORDER
     Dosage: UNK
     Dates: start: 2013

REACTIONS (3)
  - Drug interaction [Unknown]
  - Transient ischaemic attack [Unknown]
  - Angiopathy [Unknown]
